FAERS Safety Report 7627784-3 (Version None)
Quarter: 2011Q3

REPORT INFORMATION
  Report Type: 
  Country: None (occurrence: None)
  Receive Date: 20110721
  Receipt Date: 20110718
  Transmission Date: 20111222
  Serious: Yes (Hospitalization)
  Sender: FDA-Public Use
  Company Number: PHHO2011NZ11333

PATIENT
  Sex: Male
  Weight: 76.5 kg

DRUGS (5)
  1. CITALOPRAM HYDROBROMIDE [Concomitant]
     Indication: ANXIETY
     Dosage: 6 MG, DAILY
     Route: 048
  2. ZOLEDRONIC [Suspect]
     Indication: METASTATIC RENAL CELL CARCINOMA
     Dosage: 4 MG, QMO
     Route: 042
  3. METFORMIN HCL [Concomitant]
     Dosage: 750 MG, BID
     Route: 048
  4. HUMALOG [Concomitant]
     Dosage: 20 UNITS TDS
     Route: 058
  5. SANDIMMUNE [Suspect]
     Indication: METASTATIC RENAL CELL CARCINOMA
     Dosage: 10 MG, QD
     Route: 048
     Dates: start: 20110602, end: 20110612

REACTIONS (4)
  - PULMONARY OEDEMA [None]
  - PULMONARY EMBOLISM [None]
  - LOWER RESPIRATORY TRACT INFECTION [None]
  - LOBAR PNEUMONIA [None]
